FAERS Safety Report 6827158-9 (Version None)
Quarter: 2010Q3

REPORT INFORMATION
  Report Type: 
  Country: None (occurrence: None)
  Receive Date: 20100709
  Receipt Date: 20100705
  Transmission Date: 20110219
  Serious: Yes (Other)
  Sender: FDA-Public Use
  Company Number: BR-BRISTOL-MYERS SQUIBB COMPANY-15183478

PATIENT
  Sex: Male

DRUGS (1)
  1. CARBIDOPA + LEVODOPA TABS 25MG/250MG [Suspect]
     Indication: PARKINSON'S DISEASE
     Dosage: 1DF:HALF TABLET ALSO TAKEN AS CONMED
     Route: 048
     Dates: end: 20100705

REACTIONS (3)
  - ARRHYTHMIA [None]
  - CONVULSION [None]
  - WRONG TECHNIQUE IN DRUG USAGE PROCESS [None]
